FAERS Safety Report 21949458 (Version 2)
Quarter: 2023Q1

REPORT INFORMATION
  Report Type: Spontaneous
  Country: None (occurrence: US)
  Receive Date: 20230203
  Receipt Date: 20230307
  Transmission Date: 20230418
  Serious: Yes (Other)
  Sender: FDA-Public Use
  Company Number: US-D.O.R.C. International, b.v.-2137462

PATIENT

DRUGS (1)
  1. TISSUEBLUE [Suspect]
     Active Substance: BRILLIANT BLUE G

REACTIONS (1)
  - Visual impairment [Recovering/Resolving]
